FAERS Safety Report 4950025-2 (Version None)
Quarter: 2006Q1

REPORT INFORMATION
  Report Type: 
  Country: None (occurrence: None)
  Receive Date: 20060315
  Receipt Date: 20060223
  Transmission Date: 20060701
  Serious: Yes (Life-Threatening, Hospitalization)
  Sender: FDA-Public Use
  Company Number: US_0509121937

PATIENT
  Age: 52 Year
  Sex: Female
  Weight: 91 kg

DRUGS (9)
  1. ALIMTA [Suspect]
     Indication: BREAST CANCER
     Dosage: 925 MG, INTRAVENOUS
     Route: 042
     Dates: start: 20050803, end: 20050824
  2. *DOXORUBICIN (*DOXORUBICIN) [Suspect]
     Indication: BREAST CANCER
     Dosage: 92.5 MG, INTRAVENOUS
     Route: 042
     Dates: start: 20050803, end: 20050824
  3. ENALAPRIL MALEATE [Concomitant]
  4. NIFEDIPINE [Concomitant]
  5. HYDROCHLOROTHIAZIDE [Concomitant]
  6. METOCLOPRAMIDE [Concomitant]
  7. FOLIC ACID [Concomitant]
  8. VITAMIN B-12 [Concomitant]
  9. DEXAMETHASONE TAB [Concomitant]

REACTIONS (6)
  - EPISTAXIS [None]
  - HEPATOTOXICITY [None]
  - LEUKOPENIA [None]
  - SKIN HYPERPIGMENTATION [None]
  - THERMAL BURN [None]
  - THROMBOCYTOPENIA [None]
